FAERS Safety Report 9260778 (Version 1)
Quarter: 2013Q1

REPORT INFORMATION
  Report Type: Spontaneous
  Country: US (occurrence: None)
  Receive Date: 20121212
  Receipt Date: 20121212
  Transmission Date: 20140127
  Serious: No
  Sender: FDA-Public Use
  Company Number: 1210USA004402

PATIENT
  Age: 57 Year
  Sex: Male

DRUGS (3)
  1. PEG-INTRON [Suspect]
     Indication: HEPATITIS C
     Dates: start: 20120413
  2. REBETOL [Suspect]
     Dates: start: 20120413
  3. VICTRELIS [Suspect]
     Dates: start: 20120511

REACTIONS (4)
  - Drug ineffective [None]
  - Hepatitis C [None]
  - Platelet count decreased [None]
  - Chills [None]
